FAERS Safety Report 10886025 (Version 1)
Quarter: 2015Q1

REPORT INFORMATION
  Report Type: Spontaneous
  Country: US (occurrence: None)
  Receive Date: 20150302
  Receipt Date: 20150302
  Transmission Date: 20150721
  Serious: Yes (Other)
  Sender: FDA-Public Use
  Company Number: US-H14001-15-00277

PATIENT
  Age: 36 Year
  Sex: Female

DRUGS (3)
  1. SUMATRIPTAN (SUMATRIPTAN) [Suspect]
     Active Substance: SUMATRIPTAN
     Indication: MIGRAINE
  2. CONTRACEPTIVES (CONTRACEPTIVES) [Suspect]
     Active Substance: UNSPECIFIED INGREDIENT
     Indication: MENSTRUAL CYCLE MANAGEMENT
     Route: 048
  3. CITALOPRAM (CITALOPRAM) UNKNOWN [Suspect]
     Active Substance: CITALOPRAM HYDROBROMIDE
     Indication: PRODUCT USED FOR UNKNOWN INDICATION

REACTIONS (1)
  - Colitis ischaemic [None]
